FAERS Safety Report 7659772-5 (Version None)
Quarter: 2011Q3

REPORT INFORMATION
  Report Type: 
  Country: None (occurrence: None)
  Receive Date: 20110805
  Receipt Date: 20101229
  Transmission Date: 20111222
  Serious: No
  Sender: FDA-Public Use
  Company Number: US-ABBOTT-11P-163-0694697-00

PATIENT
  Age: 23 Year
  Sex: Male

DRUGS (1)
  1. DEPAKOTE ER [Suspect]
     Indication: BIPOLAR DISORDER
     Route: 048
     Dates: start: 20101215, end: 20101227

REACTIONS (3)
  - NEUTROPENIA [None]
  - DRUG LEVEL INCREASED [None]
  - THROMBOCYTOPENIA [None]
